FAERS Safety Report 6013877-3 (Version None)
Quarter: 2008Q4

REPORT INFORMATION
  Report Type: 
  Country: None (occurrence: None)
  Receive Date: 20081219
  Receipt Date: 20081212
  Transmission Date: 20090506
  Serious: Yes (Hospitalization, Other)
  Sender: FDA-Public Use
  Company Number: US-ELI_LILLY_AND_COMPANY-US200812003342

PATIENT
  Sex: Female

DRUGS (8)
  1. HUMALOG MIX 75/25 [Suspect]
  2. NEURONTIN [Concomitant]
  3. COZAAR [Concomitant]
  4. CLONAZEPAM [Concomitant]
  5. PRILOSEC [Concomitant]
  6. ARICEPT [Concomitant]
  7. PRAVACHOL [Concomitant]
  8. EFFEXOR [Concomitant]

REACTIONS (9)
  - BLOOD GLUCOSE INCREASED [None]
  - CARDIAC PACEMAKER INSERTION [None]
  - CATARACT [None]
  - DYSARTHRIA [None]
  - HYPOGLYCAEMIA [None]
  - HYPOGLYCAEMIC UNCONSCIOUSNESS [None]
  - MOVEMENT DISORDER [None]
  - SPEECH DISORDER [None]
  - VISUAL ACUITY REDUCED [None]
